FAERS Safety Report 23737053 (Version 1)
Quarter: 2024Q2

REPORT INFORMATION
  Report Type: Spontaneous
  Country: US (occurrence: None)
  Receive Date: 20240411
  Receipt Date: 20240411
  Transmission Date: 20240716
  Serious: No
  Sender: FDA-Public Use
  Company Number: None

PATIENT
  Age: 1 Year
  Sex: Female

DRUGS (1)
  1. ZORYVE [Suspect]
     Active Substance: ROFLUMILAST
     Indication: Dermatitis atopic
     Dosage: FREQUENCY : DAILY;  ?DOSE: APPLY TO RASH ON BODY EVERY DAY AS DIRECTED ?
     Route: 061
     Dates: start: 202309

REACTIONS (2)
  - Ear infection [None]
  - Respiratory distress [None]
